FAERS Safety Report 24084486 (Version 1)
Quarter: 2024Q3

REPORT INFORMATION
  Report Type: Spontaneous
  Country: US (occurrence: US)
  Receive Date: 20240712
  Receipt Date: 20240712
  Transmission Date: 20241017
  Serious: No
  Sender: TEVA
  Company Number: US-TEVA-VS-3218005

PATIENT
  Age: 71 Year
  Sex: Female

DRUGS (5)
  1. AUSTEDO [Suspect]
     Active Substance: DEUTETRABENAZINE
     Indication: Tardive dyskinesia
     Route: 065
     Dates: start: 20240623
  2. TEMAZEPAM [Concomitant]
     Active Substance: TEMAZEPAM
  3. SUCRALFATE [Concomitant]
     Active Substance: SUCRALFATE
  4. BENZTROPINE [Concomitant]
     Active Substance: BENZTROPINE
  5. BUPROPION [Concomitant]
     Active Substance: BUPROPION

REACTIONS (1)
  - Depression [Unknown]

NARRATIVE: CASE EVENT DATE: 20240601
